FAERS Safety Report 5965468-8 (Version None)
Quarter: 2008Q4

REPORT INFORMATION
  Report Type: 
  Country: None (occurrence: None)
  Receive Date: 20081125
  Receipt Date: 20081112
  Transmission Date: 20090506
  Serious: Yes (Other)
  Sender: FDA-Public Use
  Company Number: PT-JNJFOC-20081102699

PATIENT
  Age: 59 Year
  Sex: Male

DRUGS (12)
  1. REMICADE [Suspect]
     Route: 042
  2. REMICADE [Suspect]
     Route: 042
  3. REMICADE [Suspect]
     Indication: PSORIASIS
     Route: 042
  4. HYDROCORTISONE [Concomitant]
     Route: 048
  5. HYDROCORTISONE [Concomitant]
     Route: 048
  6. HYDROCORTISONE [Concomitant]
     Indication: PREMEDICATION
     Route: 048
  7. METHOTREXATE [Concomitant]
  8. FOLIC ACID [Concomitant]
  9. LEVOCETIRIZINE [Concomitant]
  10. DEFLAZACORT [Concomitant]
  11. HYDROXYZINE [Concomitant]
     Route: 048
  12. HYDROXYZINE [Concomitant]
     Route: 048

REACTIONS (4)
  - CHRONIC OBSTRUCTIVE PULMONARY DISEASE [None]
  - HYPERSENSITIVITY [None]
  - INFUSION RELATED REACTION [None]
  - RESPIRATORY DISORDER [None]
